FAERS Safety Report 4408469-3 (Version None)
Quarter: 2004Q3

REPORT INFORMATION
  Report Type: 
  Country: None (occurrence: None)
  Receive Date: 20040716
  Receipt Date: 20040603
  Transmission Date: 20050211
  Serious: No
  Sender: FDA-Public Use
  Company Number: CART-10266

PATIENT
  Age: 20 Year
  Sex: Male
  Weight: 83.9154 kg

DRUGS (1)
  1. CARTICEL [Suspect]
     Indication: ARTHROPATHY
     Dosage: 1 NA ONCE IS
     Route: 035
     Dates: start: 19971230, end: 19971230

REACTIONS (7)
  - CHONDROMALACIA [None]
  - DEVICE FAILURE [None]
  - GRAFT COMPLICATION [None]
  - PAIN [None]
  - SWELLING [None]
  - SYNOVITIS [None]
  - TRANSPLANT FAILURE [None]
